FAERS Safety Report 6905352-6 (Version None)
Quarter: 2010Q3

REPORT INFORMATION
  Report Type: 
  Country: None (occurrence: None)
  Receive Date: 20100804
  Receipt Date: 20100721
  Transmission Date: 20110219
  Serious: No
  Sender: FDA-Public Use
  Company Number: US-B.I. PHARMACEUTICALS,INC./RIDGEFIELD-2010-BP-07309BP

PATIENT
  Age: 41 Year
  Sex: Female

DRUGS (2)
  1. ATROVENT HFA [Suspect]
     Dosage: 2 PUFFS Q6H PRN
     Dates: start: 20090326
  2. LEXAPRO [Concomitant]
     Dosage: 20 MG
     Dates: start: 20100325

REACTIONS (3)
  - DRUG INEFFECTIVE [None]
  - DYSPNOEA [None]
  - THROAT IRRITATION [None]
